FAERS Safety Report 25170531 (Version 6)
Quarter: 2025Q3

REPORT INFORMATION
  Report Type: Report from Study
  Country: EU (occurrence: EU)
  Receive Date: 20250408
  Receipt Date: 20250711
  Transmission Date: 20251020
  Serious: Yes (Hospitalization)
  Sender: ABBVIE
  Company Number: EU-ABBVIE-6213959

PATIENT
  Age: 81 Year
  Sex: Female

DRUGS (3)
  1. FOSCARBIDOPA\FOSLEVODOPA [Suspect]
     Active Substance: FOSCARBIDOPA\FOSLEVODOPA
     Indication: Parkinson^s disease
     Route: 058
     Dates: start: 20250310
  2. FOSCARBIDOPA\FOSLEVODOPA [Suspect]
     Active Substance: FOSCARBIDOPA\FOSLEVODOPA
     Route: 058
  3. FOSCARBIDOPA\FOSLEVODOPA [Suspect]
     Active Substance: FOSCARBIDOPA\FOSLEVODOPA
     Route: 058
     Dates: start: 2025

REACTIONS (16)
  - Influenza [Recovering/Resolving]
  - Hyperkinesia [Not Recovered/Not Resolved]
  - Cardiovascular disorder [Not Recovered/Not Resolved]
  - Musculoskeletal stiffness [Not Recovered/Not Resolved]
  - Urinary tract infection [Unknown]
  - Abdominal discomfort [Unknown]
  - Therapeutic product effect incomplete [Unknown]
  - General physical health deterioration [Not Recovered/Not Resolved]
  - Infusion site swelling [Not Recovered/Not Resolved]
  - Bronchitis [Recovered/Resolved]
  - Dizziness [Not Recovered/Not Resolved]
  - Palpitations [Not Recovered/Not Resolved]
  - Mobility decreased [Not Recovered/Not Resolved]
  - Infusion site reaction [Not Recovered/Not Resolved]
  - Urinary retention [Not Recovered/Not Resolved]
  - Bladder discomfort [Not Recovered/Not Resolved]

NARRATIVE: CASE EVENT DATE: 20250101
